FAERS Safety Report 9201430 (Version 1)
Quarter: 2013Q2

REPORT INFORMATION
  Report Type: Spontaneous
  Country: US (occurrence: US)
  Receive Date: 20130401
  Receipt Date: 20130401
  Transmission Date: 20140414
  Serious: No
  Sender: FDA-Public Use
  Company Number: US-PFIZER INC-2013103127

PATIENT
  Age: 81 Year
  Sex: Male
  Weight: 86.17 kg

DRUGS (2)
  1. CELEBREX [Suspect]
     Indication: ARTHRALGIA
     Dosage: 200 MG, 2X/DAY
     Route: 048
     Dates: end: 201301
  2. CELEBREX [Suspect]
     Dosage: 200 MG, 2X/WEEK
     Route: 048
     Dates: start: 201301

REACTIONS (2)
  - Abdominal pain upper [Unknown]
  - Blood potassium decreased [Unknown]
